FAERS Safety Report 14317686 (Version 1)
Quarter: 2017Q4

REPORT INFORMATION
  Report Type: Spontaneous
  Country: US (occurrence: US)
  Receive Date: 20171222
  Receipt Date: 20171222
  Transmission Date: 20180321
  Serious: Yes (Other)
  Sender: FDA-Public Use
  Company Number: US-GLAXOSMITHKLINE-US2017196334

PATIENT
  Age: 86 Year
  Sex: Female

DRUGS (1)
  1. THERAFLU FLU AND SORE THROAT [Suspect]
     Active Substance: ACETAMINOPHEN\PHENIRAMINE MALEATE\PHENYLEPHRINE HYDROCHLORIDE
     Indication: PRODUCT USED FOR UNKNOWN INDICATION
     Dosage: TOOK 2 PACKETS IN 3 HOURS
     Dates: start: 20171217, end: 20171218

REACTIONS (2)
  - Inappropriate schedule of drug administration [Unknown]
  - Seizure [Unknown]

NARRATIVE: CASE EVENT DATE: 20171217
